FAERS Safety Report 9454883 (Version 1)
Quarter: 2013Q3

REPORT INFORMATION
  Report Type: Report from Study
  Country: KR (occurrence: KR)
  Receive Date: 20130813
  Receipt Date: 20130813
  Transmission Date: 20140515
  Serious: Yes (Hospitalization)
  Sender: FDA-Public Use
  Company Number: KR-009507513-1308KOR003366

PATIENT
  Age: 54 Year
  Sex: Female

DRUGS (2)
  1. PEGINTERFERON ALFA-2B [Suspect]
     Indication: HEPATITIS C
     Dosage: 80 MICROGRAM, QW
     Route: 058
     Dates: start: 20090522, end: 20100430
  2. RIBAVIRIN [Suspect]
     Indication: HEPATITIS C
     Dosage: DAILY DOSE 1000MG, BID
     Route: 048
     Dates: start: 20090522, end: 20100430

REACTIONS (2)
  - Asthenia [Recovered/Resolved]
  - Asthenia [Recovered/Resolved]
